FAERS Safety Report 25591876 (Version 1)
Quarter: 2025Q3

REPORT INFORMATION
  Report Type: Spontaneous
  Country: US (occurrence: None)
  Receive Date: 20250722
  Receipt Date: 20250722
  Transmission Date: 20251020
  Serious: Yes (Hospitalization)
  Sender: FDA-CTU
  Company Number: None

PATIENT
  Age: 90 Year
  Sex: Female
  Weight: 65.5 kg

DRUGS (11)
  1. DAPTOMYCIN [Suspect]
     Active Substance: DAPTOMYCIN
     Indication: Endocarditis
     Route: 040
     Dates: start: 20250630, end: 20250710
  2. Pembrolizumab 400 mg Q6W [Concomitant]
     Dates: start: 20230623
  3. ldulaglutide 4.5 mg Qweek [Concomitant]
     Dates: start: 20241031
  4. insulin glargine 7 units QAM [Concomitant]
     Dates: start: 2017
  5. INSULIN ASPART [Concomitant]
     Active Substance: INSULIN ASPART
     Dates: start: 2021
  6. Levothyroxine 100 mcg QD [Concomitant]
     Dates: start: 20241029
  7. metoprolol tartrate 100 mg tablet BID [Concomitant]
     Dates: start: 20240617
  8. Rosuvastatin 10 mg tablet OD [Concomitant]
     Dates: start: 20241029
  9. Torsemlde 10 mg tab three times weekly [Concomitant]
     Dates: start: 20240724
  10. cholecalclferol 1,000 unit- 2 capsules OD [Concomitant]
     Dates: start: 20240618
  11. cyanocobalamln 1,000 mcg tablet QD [Concomitant]
     Dates: start: 20240618

REACTIONS (2)
  - Rhabdomyolysis [None]
  - Drug hypersensitivity [None]

NARRATIVE: CASE EVENT DATE: 20250709
